FAERS Safety Report 9517156 (Version 1)
Quarter: 2013Q3

REPORT INFORMATION
  Report Type: Spontaneous
  Country: US (occurrence: US)
  Receive Date: 20130911
  Receipt Date: 20130911
  Transmission Date: 20140515
  Serious: No
  Sender: FDA-Public Use
  Company Number: US-PFIZER INC-2013259031

PATIENT
  Age: 71 Year
  Sex: Male
  Weight: 90.72 kg

DRUGS (1)
  1. MOTRIN IB [Suspect]
     Indication: BACK PAIN
     Dosage: UNK, TWICE A DAY
     Route: 048

REACTIONS (2)
  - Foaming at mouth [Recovered/Resolved]
  - Vomiting [Recovered/Resolved]
